FAERS Safety Report 16962383 (Version 3)
Quarter: 2020Q1

REPORT INFORMATION
  Report Type: Spontaneous
  Country: DE (occurrence: DE)
  Receive Date: 20191025
  Receipt Date: 20200110
  Transmission Date: 20200409
  Serious: Yes (Hospitalization, Other)
  Sender: FDA-Public Use
  Company Number: DE-GALDERMA-DE19061537

PATIENT
  Age: 60 Year
  Sex: Female
  Weight: 103 kg

DRUGS (16)
  1. OMEGA 3 [Concomitant]
     Active Substance: OMEGA-3 FATTY ACIDS
     Indication: PRODUCT USED FOR UNKNOWN INDICATION
     Dosage: UNK
     Route: 065
  2. PENICILLIN [Concomitant]
     Active Substance: PENICILLIN
     Indication: PRODUCT USED FOR UNKNOWN INDICATION
     Dosage: UNK
     Route: 065
  3. DICLOFENAC [Concomitant]
     Active Substance: DICLOFENAC
     Indication: PRODUCT USED FOR UNKNOWN INDICATION
     Route: 065
  4. PANTOPRAZOL HEXAL [Concomitant]
     Active Substance: PANTOPRAZOLE
     Indication: PRODUCT USED FOR UNKNOWN INDICATION
     Dosage: 40 MG, QD (IN THE MORNINGS)
     Route: 065
  5. IBUPROFEN RATIOPHARM [Concomitant]
     Indication: PAIN
     Dosage: 400 MG, QD (IN THE MORNINGS)
     Route: 065
  6. ZINC. [Concomitant]
     Active Substance: ZINC
     Indication: PRODUCT USED FOR UNKNOWN INDICATION
     Dosage: UNK
     Route: 065
  7. VALDOXAN [Concomitant]
     Active Substance: AGOMELATINE
     Indication: PRODUCT USED FOR UNKNOWN INDICATION
     Dosage: 25 MG, QD (MORNING)
     Route: 065
     Dates: start: 20120116
  8. HCT [Concomitant]
     Active Substance: HYDROCHLOROTHIAZIDE
     Indication: HYPERTENSION
     Dosage: 12.5 MG, UNK
     Route: 048
  9. VALSARTAN 1A PHARMA PLUS [Concomitant]
     Active Substance: HYDROCHLOROTHIAZIDE\VALSARTAN
     Indication: PRODUCT USED FOR UNKNOWN INDICATION
     Dosage: 1 DF (80/12.5 MG), QD (MORNING)
     Route: 065
     Dates: start: 20140202, end: 201808
  10. DOXYCYCLINE. [Suspect]
     Active Substance: DOXYCYCLINE
     Indication: PRODUCT USED FOR UNKNOWN INDICATION
     Dosage: UNK
     Route: 065
  11. PROPOFOL. [Concomitant]
     Active Substance: PROPOFOL
     Indication: PRODUCT USED FOR UNKNOWN INDICATION
     Dosage: UNK
     Route: 065
  12. VALSARTAN. [Concomitant]
     Active Substance: VALSARTAN
     Indication: HYPERTENSION
     Dosage: 1 DF (80 MG), QD (MORNING UNTIL SURGERY)
     Route: 065
     Dates: start: 2006
  13. VOTUM [Concomitant]
     Indication: PRODUCT USED FOR UNKNOWN INDICATION
     Dosage: 0.5 DF, QD (10MG) MORNING
     Route: 065
     Dates: start: 2005
  14. IODIDE [Concomitant]
     Active Substance: IODINE
     Indication: GOITRE
     Dosage: 200 MG, QD (MORNING)
     Route: 048
     Dates: start: 2000
  15. CLARITHROMYCIN. [Concomitant]
     Active Substance: CLARITHROMYCIN
     Indication: PRODUCT USED FOR UNKNOWN INDICATION
     Dosage: UNK
     Route: 065
  16. HEPARIN SODIUM. [Concomitant]
     Active Substance: HEPARIN SODIUM
     Indication: LYMPHADENECTOMY
     Dosage: UNK
     Route: 005

REACTIONS (32)
  - Osteoarthritis [Unknown]
  - Anal incontinence [Recovering/Resolving]
  - General physical health deterioration [Unknown]
  - Cough [Unknown]
  - Vaginal haemorrhage [Unknown]
  - Spinal pain [Unknown]
  - Carpal tunnel syndrome [Unknown]
  - Dysuria [Recovering/Resolving]
  - Pollakiuria [Recovering/Resolving]
  - Pain [Recovering/Resolving]
  - Back pain [Unknown]
  - Polyuria [Recovering/Resolving]
  - Lymphoedema [Unknown]
  - Urinary tract infection enterococcal [Recovering/Resolving]
  - Myelopathy [Unknown]
  - Urinary tract infection [Unknown]
  - Procedural complication [Unknown]
  - Asthenia [Unknown]
  - Lipoedema [Unknown]
  - Urinary incontinence [Recovering/Resolving]
  - Sleep disorder [Unknown]
  - Endometrial cancer [Recovered/Resolved]
  - Fatigue [Unknown]
  - Fistula discharge [Unknown]
  - Constipation [Unknown]
  - Fibromyalgia [Unknown]
  - Thrombosis [Unknown]
  - Bladder spasm [Unknown]
  - Drug hypersensitivity [Unknown]
  - Spinal cord disorder [Unknown]
  - Sneezing [Unknown]
  - Polyarthritis [Unknown]

NARRATIVE: CASE EVENT DATE: 2006
